FAERS Safety Report 8969883 (Version 1)
Quarter: 2012Q4

REPORT INFORMATION
  Report Type: 
  Country: US (occurrence: US)
  Receive Date: 20121218
  Receipt Date: 20121218
  Transmission Date: 20130627
  Serious: No
  Sender: FDA-Public Use
  Company Number: US-BRISTOL-MYERS SQUIBB COMPANY-16549008

PATIENT
  Age: 65 Year
  Sex: Female
  Weight: 59.86 kg

DRUGS (1)
  1. ABILIFY [Suspect]
     Indication: DEPRESSION
     Dosage: strength:10mg

REACTIONS (4)
  - Insomnia [Unknown]
  - Weight increased [Unknown]
  - Headache [Unknown]
  - Drug ineffective [Unknown]
